FAERS Safety Report 9248185 (Version 1)
Quarter: 2013Q1

REPORT INFORMATION
  Report Type: Spontaneous
  Country: US (occurrence: None)
  Receive Date: 20130305
  Receipt Date: 20130305
  Transmission Date: 20140127
  Serious: Yes (Hospitalization, Other)
  Sender: FDA-Public Use
  Company Number: 163-21880-12092255

PATIENT
  Age: 72 Year
  Sex: Male

DRUGS (5)
  1. REVLIMID [Suspect]
     Indication: PLASMA CELL MYELOMA
     Dosage: 25MG, 1 IN 1 D, PO
     Route: 048
     Dates: start: 20120530
  2. LISINOPRIL (LISINOPRIL) [Concomitant]
  3. ONDANSETRON (ONDANSETRON) [Concomitant]
  4. LEVOTHYROXIN (LEVOTHYROXINE SODIUM) [Concomitant]
  5. MELOXICAM (MELOXICAM) [Concomitant]

REACTIONS (2)
  - Thrombosis [None]
  - Muscle spasms [None]
